FAERS Safety Report 10033497 (Version 1)
Quarter: 2014Q1

REPORT INFORMATION
  Report Type: Spontaneous
  Country: US (occurrence: US)
  Receive Date: 20140325
  Receipt Date: 20140325
  Transmission Date: 20141002
  Serious: No
  Sender: FDA-Public Use
  Company Number: US-BIOGENIDEC-2014BI025697

PATIENT
  Age: 52 Year
  Sex: Male

DRUGS (1)
  1. TYSABRI [Suspect]
     Indication: MULTIPLE SCLEROSIS
     Route: 042
     Dates: start: 20120807

REACTIONS (5)
  - Cellulitis [Unknown]
  - Decreased immune responsiveness [Unknown]
  - Erythema [Unknown]
  - Pain of skin [Unknown]
  - Feeling hot [Unknown]
